FAERS Safety Report 4852737-8 (Version None)
Quarter: 2005Q4

REPORT INFORMATION
  Report Type: 
  Country: None (occurrence: None)
  Receive Date: 20051213
  Receipt Date: 20051004
  Transmission Date: 20060501
  Serious: Yes (Hospitalization, Other)
  Sender: FDA-Public Use
  Company Number: PHBS2005IE14496

PATIENT
  Age: 14 Year
  Sex: Male
  Weight: 60 kg

DRUGS (1)
  1. VOLTAREN [Suspect]
     Indication: CLAVICLE FRACTURE
     Dosage: 60 MG/DAY
     Route: 030

REACTIONS (4)
  - ASTHENIA [None]
  - DRUG ADMINISTRATION ERROR [None]
  - INJECTION SITE NERVE DAMAGE [None]
  - NEURALGIA [None]
